FAERS Safety Report 6662210-2 (Version None)
Quarter: 2010Q1

REPORT INFORMATION
  Report Type: 
  Country: None (occurrence: None)
  Receive Date: 20100331
  Receipt Date: 20100323
  Transmission Date: 20100710
  Serious: Yes (Life-Threatening, Hospitalization)
  Sender: FDA-Public Use
  Company Number: NL-PFIZER INC-2010037387

PATIENT
  Age: 72 Year
  Sex: Female
  Weight: 70 kg

DRUGS (7)
  1. LYRICA [Suspect]
     Indication: MULTIPLE MYELOMA
     Dosage: 300 UNK, 2X/DAY
  2. MIRTAZAPINE [Suspect]
     Indication: MULTIPLE MYELOMA
     Dosage: 30 MG, UNK
  3. REVLIMID [Suspect]
     Indication: MULTIPLE MYELOMA
     Dosage: 5 MG, 1X/DAY
     Route: 048
     Dates: start: 20100222, end: 20100308
  4. DEXAMETHASONE [Suspect]
     Indication: MULTIPLE MYELOMA
     Dosage: 20 MG, UNK
     Dates: start: 20100222, end: 20100308
  5. AMITRIPTYLINE [Suspect]
     Indication: MULTIPLE MYELOMA
     Dosage: 50 UNK, 2X/DAY
  6. FENTANYL [Suspect]
     Indication: MULTIPLE MYELOMA
     Dosage: 50 UG, UNK
  7. EPOETIN BETA [Suspect]
     Indication: MULTIPLE MYELOMA
     Dosage: 1 UNK, 1X/DAY

REACTIONS (1)
  - INTESTINAL PERFORATION [None]
